FAERS Safety Report 5012375-3 (Version None)
Quarter: 2006Q2

REPORT INFORMATION
  Report Type: 
  Country: None (occurrence: None)
  Receive Date: 20060414
  Receipt Date: 20060220
  Transmission Date: 20061013
  Serious: No
  Sender: FDA-Public Use
  Company Number: 2006SP000872

PATIENT
  Age: 80 Year
  Sex: Female
  Weight: 42.6381 kg

DRUGS (2)
  1. LUNESTA [Suspect]
     Indication: INSOMNIA
     Dosage: 2 MG;ORAL
     Route: 048
     Dates: start: 20051201
  2. PRAVACHOL [Concomitant]

REACTIONS (1)
  - EYE PAIN [None]
